FAERS Safety Report 9386154 (Version 2)
Quarter: 2013Q3

REPORT INFORMATION
  Report Type: Spontaneous
  Country: US (occurrence: US)
  Receive Date: 20130707
  Receipt Date: 20130717
  Transmission Date: 20140515
  Serious: Yes (Hospitalization, Other)
  Sender: FDA-Public Use
  Company Number: US-ALLERGAN-1307444US

PATIENT
  Age: 93 Year
  Sex: Female

DRUGS (9)
  1. LUMIGAN? 0.01% [Suspect]
     Indication: OPEN ANGLE GLAUCOMA
     Dosage: 2 GTT, UNK
     Route: 047
  2. XOPENEX [Suspect]
     Indication: BRONCHITIS
     Dosage: UNK, Q4HR
     Route: 055
     Dates: end: 20130517
  3. XOPENEX [Suspect]
     Dosage: UNK UNK, PRN
     Route: 055
     Dates: end: 20130517
  4. NOVAX [Concomitant]
     Indication: HYPERTENSION
     Dosage: 10 MG, QD
     Route: 048
  5. DIAVAN [Concomitant]
     Indication: HYPERTENSION
     Dosage: 160 MG, QD
     Route: 048
  6. VITAMIN D                          /00107901/ [Concomitant]
     Indication: SUPPLEMENTATION THERAPY
     Dosage: 1000 MG, QD
     Route: 048
  7. VITAMIN B12                        /00056201/ [Concomitant]
     Indication: SUPPLEMENTATION THERAPY
     Dosage: UNK
  8. AZOPT [Concomitant]
     Indication: GLAUCOMA
     Dosage: 2 GTT, BID
     Route: 047
  9. AZOPT [Concomitant]
     Dosage: 2 GTT, TID
     Route: 047

REACTIONS (16)
  - Infection [Unknown]
  - Visual impairment [Unknown]
  - Diplopia [Unknown]
  - Chest pain [Unknown]
  - Blindness [Unknown]
  - Visual acuity reduced [Unknown]
  - Dry mouth [Unknown]
  - Memory impairment [Unknown]
  - Back pain [Unknown]
  - Musculoskeletal pain [Unknown]
  - Respiratory tract congestion [Unknown]
  - Asthenia [Unknown]
  - Dry eye [Recovered/Resolved]
  - Dry eye [Unknown]
  - Headache [Unknown]
  - Vision blurred [Unknown]
